FAERS Safety Report 14545844 (Version 2)
Quarter: 2018Q1

REPORT INFORMATION
  Report Type: Spontaneous
  Country: US (occurrence: US)
  Receive Date: 20180219
  Receipt Date: 20180319
  Transmission Date: 20180509
  Serious: Yes (Hospitalization)
  Sender: FDA-Public Use
  Company Number: US-ELI_LILLY_AND_COMPANY-US201802006678

PATIENT
  Age: 58 Year
  Sex: Male
  Weight: 88.44 kg

DRUGS (2)
  1. TALTZ [Suspect]
     Active Substance: IXEKIZUMAB
     Indication: PSORIASIS
     Dosage: TWO 80MG INJECTIONS
     Route: 065
     Dates: start: 20180103
  2. TALTZ [Suspect]
     Active Substance: IXEKIZUMAB
     Dosage: WEEK 4 DOSING
     Route: 065

REACTIONS (4)
  - Diarrhoea [Unknown]
  - Psoriasis [Recovered/Resolved]
  - Arthralgia [Recovered/Resolved]
  - White blood cell count decreased [Unknown]
